FAERS Safety Report 14137640 (Version 2)
Quarter: 2017Q4

REPORT INFORMATION
  Report Type: Spontaneous
  Country: JP (occurrence: JP)
  Receive Date: 20171027
  Receipt Date: 20171113
  Transmission Date: 20180321
  Serious: Yes (Death, Other)
  Sender: FDA-Public Use
  Company Number: PHJP2017JP032095

PATIENT
  Age: 83 Year
  Sex: Male

DRUGS (1)
  1. VOLTAREN SUP [Suspect]
     Active Substance: DICLOFENAC SODIUM
     Indication: PYREXIA
     Dosage: 50 MG, ONCE/SINGLE
     Route: 054

REACTIONS (2)
  - Shock [Fatal]
  - Blood pressure decreased [Fatal]
